FAERS Safety Report 9107834 (Version 2)
Quarter: 2013Q1

REPORT INFORMATION
  Report Type: Spontaneous
  Country: US (occurrence: US)
  Receive Date: 20130221
  Receipt Date: 20130315
  Transmission Date: 20140127
  Serious: Yes (Other)
  Sender: FDA-Public Use
  Company Number: US-BIOGENIDEC-2013BI016760

PATIENT
  Sex: Male

DRUGS (2)
  1. AVONEX [Suspect]
     Indication: MULTIPLE SCLEROSIS
     Route: 030
     Dates: start: 20121119
  2. MEDICATIONS (NOS) [Concomitant]

REACTIONS (4)
  - Spinal fusion surgery [Not Recovered/Not Resolved]
  - Scar [Unknown]
  - Multiple sclerosis [Unknown]
  - Pain [Unknown]
